FAERS Safety Report 16229755 (Version 1)
Quarter: 2019Q2

REPORT INFORMATION
  Report Type: Spontaneous
  Country: US (occurrence: US)
  Receive Date: 20190423
  Receipt Date: 20190423
  Transmission Date: 20190711
  Serious: Yes (Disabling)
  Sender: FDA-Public Use
  Company Number: US-TEVA-2019-US-1040186

PATIENT

DRUGS (4)
  1. DOCEFREZ [Suspect]
     Active Substance: DOCETAXEL ANHYDROUS
     Route: 065
     Dates: start: 201701, end: 201704
  2. TAXOTERE [Suspect]
     Active Substance: DOCETAXEL
     Route: 065
     Dates: start: 201701, end: 201704
  3. DOCETAXEL INJECTION [Suspect]
     Active Substance: DOCETAXEL
     Dates: start: 201701, end: 201704
  4. DOCETAXEL INJECTION [Suspect]
     Active Substance: DOCETAXEL
     Dates: start: 201701, end: 201704

REACTIONS (1)
  - Alopecia [Not Recovered/Not Resolved]
